FAERS Safety Report 13345825 (Version 3)
Quarter: 2017Q1

REPORT INFORMATION
  Report Type: Report from Study
  Country: None (occurrence: FR)
  Receive Date: 20170317
  Receipt Date: 20170331
  Transmission Date: 20170428
  Serious: Yes (Other)
  Sender: FDA-Public Use
  Company Number: FR-ABBVIE-17P-056-1906009-00

PATIENT
  Age: 67 Year
  Sex: Male
  Weight: 41 kg

DRUGS (1)
  1. DUODOPA [Suspect]
     Active Substance: CARBIDOPA\LEVODOPA
     Indication: PRODUCT USED FOR UNKNOWN INDICATION
     Route: 050
     Dates: start: 201702

REACTIONS (7)
  - Abdominal pain [Unknown]
  - Drug ineffective [Unknown]
  - Fall [Unknown]
  - Asthenia [Unknown]
  - Diarrhoea [Unknown]
  - General physical health deterioration [Not Recovered/Not Resolved]
  - Weight decreased [Unknown]

NARRATIVE: CASE EVENT DATE: 20170308
